FAERS Safety Report 6243389-3 (Version None)
Quarter: 2009Q2

REPORT INFORMATION
  Report Type: 
  Country: None (occurrence: None)
  Receive Date: 20090622
  Receipt Date: 20090622
  Transmission Date: 20091009
  Serious: Yes (Other)
  Sender: FDA-Public Use
  Company Number: None

PATIENT
  Age: 41 Year
  Sex: Female
  Weight: 83.9154 kg

DRUGS (2)
  1. WAL-DRYL 25MG WALGREENS [Suspect]
     Indication: HYPERSENSITIVITY
     Dosage: 1 PILL 1XDAY PO
     Route: 048
     Dates: start: 20090520, end: 20090521
  2. WAL-DRYL 25MG WALGREENS [Suspect]
     Indication: NASAL DISORDER
     Dosage: 1 PILL 1XDAY PO
     Route: 048
     Dates: start: 20090520, end: 20090521

REACTIONS (1)
  - VOMITING [None]
